FAERS Safety Report 7892371-9 (Version None)
Quarter: 2011Q4

REPORT INFORMATION
  Report Type: 
  Country: None (occurrence: None)
  Receive Date: 20111103
  Receipt Date: 20111103
  Transmission Date: 20120403
  Serious: Yes (Hospitalization)
  Sender: FDA-Public Use
  Company Number: None

PATIENT
  Sex: Male
  Weight: 141.5223 kg

DRUGS (2)
  1. MYFORTIC [Suspect]
     Indication: RENAL TRANSPLANT
     Dosage: 720MG BID PO
     Route: 048
     Dates: start: 20111020
  2. MYFORTIC [Suspect]
     Indication: IMMUNOSUPPRESSION
     Dosage: 720MG BID PO
     Route: 048
     Dates: start: 20111020

REACTIONS (2)
  - ANAEMIA [None]
  - ANTIBODY TEST POSITIVE [None]
